FAERS Safety Report 19706817 (Version 1)
Quarter: 2021Q3

REPORT INFORMATION
  Report Type: Spontaneous
  Country: US (occurrence: US)
  Receive Date: 20210816
  Receipt Date: 20210816
  Transmission Date: 20211014
  Serious: No
  Sender: FDA-Public Use
  Company Number: None

PATIENT
  Sex: Female

DRUGS (1)
  1. DYSPORT [Suspect]
     Active Substance: ABOBOTULINUMTOXINA
     Dates: start: 20210416

REACTIONS (3)
  - Bell^s palsy [None]
  - Suspected product quality issue [None]
  - Product storage error [None]

NARRATIVE: CASE EVENT DATE: 20210416
